FAERS Safety Report 9145885 (Version 1)
Quarter: 2013Q1

REPORT INFORMATION
  Report Type: Spontaneous
  Country: CA (occurrence: CA)
  Receive Date: 20130307
  Receipt Date: 20130307
  Transmission Date: 20140127
  Serious: Yes (Other)
  Sender: FDA-Public Use
  Company Number: CA-JNJFOC-20130217168

PATIENT
  Age: 99 Year
  Sex: Female
  Weight: 68.03 kg

DRUGS (1)
  1. XARELTO [Suspect]
     Indication: ANTICOAGULANT THERAPY
     Route: 048

REACTIONS (6)
  - Agitation [Recovered/Resolved]
  - Incoherent [Recovered/Resolved]
  - Aggression [Recovered/Resolved]
  - Nausea [Recovered/Resolved]
  - Rash erythematous [Unknown]
  - Confusional state [Unknown]
